FAERS Safety Report 24035092 (Version 3)
Quarter: 2024Q3

REPORT INFORMATION
  Report Type: Report from Study
  Country: US (occurrence: US)
  Receive Date: 20240701
  Receipt Date: 20240710
  Transmission Date: 20241016
  Serious: No
  Sender: ROCHE
  Company Number: US-ROCHE-3567297

PATIENT
  Age: 1 Year
  Sex: Female
  Weight: 8.6 kg

DRUGS (1)
  1. EVRYSDI [Suspect]
     Active Substance: RISDIPLAM
     Indication: Spinal muscular atrophy
     Dosage: EQUAL TO 3MLS
     Route: 050
     Dates: start: 20240513

REACTIONS (5)
  - Product dose omission issue [Unknown]
  - Product use complaint [Unknown]
  - No adverse event [Unknown]
  - Device issue [Unknown]
  - Off label use [Unknown]

NARRATIVE: CASE EVENT DATE: 20240517
